FAERS Safety Report 24211976 (Version 1)
Quarter: 2024Q3

REPORT INFORMATION
  Report Type: Spontaneous
  Country: US (occurrence: US)
  Receive Date: 20240814
  Receipt Date: 20240814
  Transmission Date: 20241017
  Serious: No
  Sender: ABBVIE
  Company Number: US-ABBVIE-5877567

PATIENT
  Age: 26 Year
  Sex: Female

DRUGS (1)
  1. VRAYLAR [Suspect]
     Active Substance: CARIPRAZINE
     Indication: Major depression
     Route: 048

REACTIONS (4)
  - Dysstasia [Unknown]
  - Limb discomfort [Unknown]
  - Nausea [Unknown]
  - Headache [Unknown]
